FAERS Safety Report 23707394 (Version 3)
Quarter: 2024Q2

REPORT INFORMATION
  Report Type: Spontaneous
  Country: NL (occurrence: NL)
  Receive Date: 20240404
  Receipt Date: 20240515
  Transmission Date: 20240716
  Serious: Yes (Hospitalization, Other)
  Sender: FDA-Public Use
  Company Number: NL-ABBVIE-5691798

PATIENT
  Age: 50 Year
  Sex: Female

DRUGS (17)
  1. ALEMTUZUMAB [Suspect]
     Active Substance: ALEMTUZUMAB
     Indication: Prophylaxis against graft versus host disease
     Dosage: UNK
     Route: 065
  2. ALEMTUZUMAB [Suspect]
     Active Substance: ALEMTUZUMAB
     Dosage: UNKSTART DATE TEXT: 2 DAYS BEFORE TRANSPLANTATION
     Route: 065
  3. BUSULFAN [Suspect]
     Active Substance: BUSULFAN
     Indication: Allogenic stem cell transplantation
     Dosage: 1.6 MG/KG
     Route: 065
  4. BUSULFAN [Suspect]
     Active Substance: BUSULFAN
     Dosage: START DATE TEXT: 4 DAYS BEFORE TRANSPLANTATIONLAST ADMIN TEXT: 2 DAYS BEFORE TRANSPLANTATION
     Route: 065
  5. CYCLOSPORINE [Suspect]
     Active Substance: CYCLOSPORINE
     Indication: Prophylaxis against graft versus host disease
     Dosage: UNK
     Route: 065
  6. CYCLOSPORINE [Suspect]
     Active Substance: CYCLOSPORINE
     Indication: Immune system disorder
     Dosage: UNK, TAPERING OF FROM LEVEL 200-300 MG/L
     Route: 065
  7. CYCLOSPORINE [Suspect]
     Active Substance: CYCLOSPORINE
     Dosage: UNK, TROUGH LEVEL OF 200-300 MG/L SHOULD BE REACHED
     Route: 065
  8. FILGRASTIM [Suspect]
     Active Substance: FILGRASTIM
     Indication: Immune system disorder
     Dosage: UNK
     Route: 065
  9. FLUDARABINE [Suspect]
     Active Substance: FLUDARABINE PHOSPHATE
     Indication: Allogenic stem cell transplantation
     Dosage: 30 MG/M2
     Route: 065
  10. FLUDARABINE [Suspect]
     Active Substance: FLUDARABINE PHOSPHATE
     Dosage: START DATE TEXT: 8 DAYS BEFORE TRANSPLANTATIONLAST ADMINISTRATION (TEXT): 3 DAYS BEFORE TRANSPLANTAT
     Route: 065
  11. FLUDARABINE [Suspect]
     Active Substance: FLUDARABINE PHOSPHATE
     Indication: Allogenic stem cell transplantation
     Dosage: 30.000MG/M2
     Route: 065
  12. HUMIRA [Suspect]
     Active Substance: ADALIMUMAB
     Indication: Immune system disorder
     Dosage: UNK
     Route: 058
  13. HUMIRA [Suspect]
     Active Substance: ADALIMUMAB
     Dosage: UNK
     Route: 065
  14. MYCOPHENOLATE MOFETIL [Suspect]
     Active Substance: MYCOPHENOLATE MOFETIL
     Indication: Prophylaxis against graft versus host disease
     Dosage: UNK
     Route: 065
  15. MYCOPHENOLATE MOFETIL [Suspect]
     Active Substance: MYCOPHENOLATE MOFETIL
     Dosage: START DATE TEXT: 1 DAYS BEFORE TRANSPLANTATIONLAST ADMINISTRATION (TEXT): 35 DAYS AFTER TRANSPLANTAT
     Route: 065
  16. PREDNISONE [Suspect]
     Active Substance: PREDNISONE
     Indication: Prophylaxis against graft versus host disease
     Dosage: START DATE TEXT: 2 DAYS BEFORE TRANSPLANTATIONLAST ADMINISTRATION (TEXT): 1 DAYS BEFORE TRANSPLANTAT
     Route: 065
  17. Immunoglobulin [Concomitant]
     Indication: Product used for unknown indication
     Route: 042

REACTIONS (14)
  - Allogenic stem cell transplantation [Unknown]
  - BK virus infection [Unknown]
  - Neutropenia [Recovering/Resolving]
  - Autoinflammatory disease [Unknown]
  - Renal impairment [Unknown]
  - Anaemia [Unknown]
  - Infection [Unknown]
  - Respiratory tract infection [Recovered/Resolved]
  - Infection [Recovering/Resolving]
  - Therapeutic product ineffective [Not Recovered/Not Resolved]
  - Drug ineffective [Not Recovered/Not Resolved]
  - Drug ineffective [Not Recovered/Not Resolved]
  - Drug ineffective [Not Recovered/Not Resolved]
  - Drug ineffective [Not Recovered/Not Resolved]
